FAERS Safety Report 4339914-X (Version None)
Quarter: 2004Q2

REPORT INFORMATION
  Report Type: 
  Country: None (occurrence: None)
  Receive Date: 20040414
  Receipt Date: 20040414
  Transmission Date: 20050107
  Serious: No
  Sender: FDA-Public Use
  Company Number: None

PATIENT
  Age: 89 Year
  Sex: Female
  Weight: 42.83 kg

DRUGS (2)
  1. TEQUIN [Suspect]
     Indication: PNEUMONIA
     Dosage: 400 MG IV X 1/ IN ER
     Route: 042
     Dates: start: 20020706
  2. TEQUIN [Suspect]
     Dosage: 200 MG IV QD/FLOOR
     Route: 042
     Dates: start: 20020706, end: 20020710

REACTIONS (1)
  - HYPOGLYCAEMIA [None]
